FAERS Safety Report 10144776 (Version 1)
Quarter: 2014Q2

REPORT INFORMATION
  Report Type: Spontaneous
  Country: US (occurrence: US)
  Receive Date: 20140430
  Receipt Date: 20140430
  Transmission Date: 20141212
  Serious: Yes (Other)
  Sender: FDA-Public Use
  Company Number: US-SA-2013SA130343

PATIENT
  Sex: Male

DRUGS (1)
  1. LOVENOX [Suspect]
     Route: 065
     Dates: start: 20091119

REACTIONS (5)
  - Spinal haematoma [Unknown]
  - Paraplegia [Unknown]
  - Asthenia [Unknown]
  - Sensory loss [Unknown]
  - Urinary incontinence [Unknown]
